FAERS Safety Report 9887863 (Version 1)
Quarter: 2014Q1

REPORT INFORMATION
  Report Type: Spontaneous
  Country: US (occurrence: None)
  Receive Date: 20140207
  Receipt Date: 20140207
  Transmission Date: 20141002
  Serious: Yes (Hospitalization)
  Sender: FDA-Public Use
  Company Number: None

PATIENT
  Age: 43 Year
  Sex: Male
  Weight: 93.3 kg

DRUGS (1)
  1. AZITHROMYCIN [Suspect]
     Indication: CONJUNCTIVITIS CHLAMYDIAL
     Route: 048
     Dates: start: 20120830, end: 20120831

REACTIONS (4)
  - Hypophagia [None]
  - Dysphagia [None]
  - Oral mucosal exfoliation [None]
  - Oral mucosal blistering [None]
